FAERS Safety Report 4846124-6 (Version None)
Quarter: 2005Q4

REPORT INFORMATION
  Report Type: 
  Country: None (occurrence: None)
  Receive Date: 20051130
  Receipt Date: 20051117
  Transmission Date: 20060501
  Serious: Yes (Other)
  Sender: FDA-Public Use
  Company Number: 2005157674

PATIENT

DRUGS (1)
  1. LYRICA [Suspect]
     Indication: ILL-DEFINED DISORDER

REACTIONS (2)
  - MYOCLONUS [None]
  - RHABDOMYOLYSIS [None]
